FAERS Safety Report 5468862-7 (Version None)
Quarter: 2007Q3

REPORT INFORMATION
  Report Type: 
  Country: None (occurrence: None)
  Receive Date: 20070926
  Receipt Date: 20070919
  Transmission Date: 20080115
  Serious: Yes (Other)
  Sender: FDA-Public Use
  Company Number: JP-PFIZER INC-2007079499

PATIENT
  Age: 55 Year
  Sex: Female

DRUGS (1)
  1. DETRUSITOL LA [Suspect]
     Route: 048

REACTIONS (1)
  - FACE OEDEMA [None]
